FAERS Safety Report 8661004 (Version 5)
Quarter: 2014Q4

REPORT INFORMATION
  Report Type: Spontaneous
  Country: JP (occurrence: None)
  Receive Date: 20120626
  Receipt Date: 20141106
  Transmission Date: 20150529
  Serious: Yes (Hospitalization, Other)
  Sender: FDA-Public Use
  Company Number: 2010JP000243

PATIENT
  Age: 23 Year
  Sex: Female
  Weight: 49 kg

DRUGS (61)
  1. SOLU-MEDROL [Suspect]
     Active Substance: METHYLPREDNISOLONE SODIUM SUCCINATE
     Indication: LUPUS NEPHRITIS
     Dosage: 1 G, ONCE DAILY, UNKNOWN
     Dates: start: 20070723, end: 20070724
  2. JUVELA N (TOCOPHERYL NICOTINATE) [Concomitant]
  3. PRIMPERAN (METOCLOPRAMIDE) [Concomitant]
  4. CONIEL (BENIDIPINE HYDROCHLORIDE) (BENIDIPINE HYDROCHLORIDE) [Concomitant]
     Active Substance: BENIDIPINE HYDROCHLORIDE
  5. BONOTEO (MINODRONIC ACID) [Concomitant]
  6. BAYASPIRIN (ACETYLSALICYLIC ACID) (ACETYLSALICYLIC ACID) [Concomitant]
     Active Substance: ASPIRIN
  7. BREDININ (MIZORIBINE) [Concomitant]
     Active Substance: MIZORIBINE
  8. MEROPEN /01250501/ (MEROPENEM) [Concomitant]
  9. FLUNASE /00972202/ (FLUTICASONE PROPIONATE) [Concomitant]
  10. BEZATOL (BEZAFIBRATE) [Concomitant]
  11. OMEPRAL (OMEPRAZOLE) [Concomitant]
     Active Substance: OMEPRAZOLE
  12. PARIET (RABEPRAZOLE SODIUM) [Concomitant]
  13. PANALDINE (TICLOPIDINE HYDROCHLORIDE)? [Concomitant]
  14. TAKEPRON (LANSOPRAZOLE) [Concomitant]
     Active Substance: LANSOPRAZOLE
  15. VITAMEDIN /00176001/ (CYANOCOBALAMIN PYRIDOXINE HYDROCHLORIDE THIAMINE HYDROCHLORIDE) [Concomitant]
  16. DIOVAN [Concomitant]
     Active Substance: VALSARTAN
  17. SOLITA-T1 (GLOUSE, SODIUM CHLORIDE, SODIUM LACTATE) [Concomitant]
  18. LIPIDIL (FENOFIBRATE) [Concomitant]
  19. GLUCOSE (GLUCOSE) [Concomitant]
  20. PL GRAN. (CAFFEINE, PARACETAMOL, PROMETHAZINE METHYLENE DISALICYLATE, SALICYLAMIDE) [Concomitant]
  21. LOXONIN (LOXOPROFEN SODIUM) [Concomitant]
     Active Substance: LOXOPROFEN SODIUM
  22. SOLU-MEDROL [Suspect]
     Active Substance: METHYLPREDNISOLONE SODIUM SUCCINATE
     Indication: SYSTEMIC LUPUS ERYTHEMATOSUS
     Dosage: 1 G, ONCE DAILY, UNKNOWN
     Dates: start: 20070723, end: 20070724
  23. LIPITOR [Concomitant]
     Active Substance: ATORVASTATIN CALCIUM
  24. ALFAROL [Concomitant]
     Active Substance: ALFACALCIDOL
  25. MUCOSTA (REBAMIPIDE) [Concomitant]
  26. WARFARIN (WARFARIN) [Concomitant]
     Active Substance: WARFARIN
  27. NATRIX (INDAPAMIDE) [Concomitant]
  28. CEFZON (CEFDINIR) [Concomitant]
  29. NAUZELIN (DOMPERIDONE) [Concomitant]
  30. COCARL (PARACETAMOL) [Concomitant]
  31. FLOMOX (CEFCAPENE PIVOXIL HYDROCHLORIDE) [Concomitant]
  32. ZETIA [Concomitant]
     Active Substance: EZETIMIBE
  33. ALLELOCK (OLOPATADINE HYDROCHLORIDE) [Concomitant]
  34. CEFTRIAXONE (CEFTRIAXONE) [Concomitant]
     Active Substance: CEFTRIAXONE
  35. DECADRON [Suspect]
     Active Substance: DEXAMETHASONE
     Indication: LUPUS NEPHRITIS
     Dosage: 5.5 MG, ONCE DAILY, ORAL
     Route: 048
     Dates: start: 20070731, end: 20080225
  36. EPADEL-S (ETHYL ICOSAPENTATE) [Concomitant]
  37. KAYTWO N (MENATETRENONE) [Concomitant]
  38. MOHRUS L (KETOPROFEN) [Concomitant]
  39. EBASTEL D (EBASTINE, PSEUDOEPHEDRINE HYDORCHLORIDE) ORODISPERSIBLE [Concomitant]
  40. ASTOMIN (DIMEMORFAN) [Concomitant]
  41. TANATRIL (IMIDAPRIL HYDROCHLORIDE) [Concomitant]
     Active Substance: IMIDAPRIL HYDROCHLORIDE
  42. ZYLORIC (ALLOPURINOL) [Concomitant]
     Active Substance: ALLOPURINOL
  43. PREDNISOLONE. [Suspect]
     Active Substance: PREDNISOLONE
     Indication: LUPUS NEPHRITIS
     Dosage: 35 MG, ONCE DAILY, ORAL
     Route: 048
     Dates: end: 20070802
  44. BAKTAR (SULFAMETHOXAZOLE, TRIMETHOPRIM) [Concomitant]
  45. PLETAAL (CILOSTAZOL) [Concomitant]
  46. NIPOLAZIN (MEQUITAZINE) [Concomitant]
  47. PANALDINE (TICLOPIDINE HYDROCHLORIDE) [Concomitant]
  48. CRAVIT (LEVOFLOXACIN) [Concomitant]
  49. PROGRAF [Suspect]
     Active Substance: TACROLIMUS\TACROLIMUS ANHYDROUS
     Indication: LUPUS NEPHRITIS
     Dosage: 3 MG, ONCE DAILY, ORAL?
     Route: 048
     Dates: start: 20070723, end: 20090325
  50. MEDROL [Suspect]
     Active Substance: METHYLPREDNISOLONE
     Indication: LUPUS NEPHRITIS
     Route: 048
     Dates: start: 20080229
  51. CELLCEPT [Concomitant]
     Active Substance: MYCOPHENOLATE MOFETIL\MYCOPHENOLATE MOFETIL HYDROCHLORIDE
  52. LASIX [Concomitant]
     Active Substance: FUROSEMIDE
  53. LAC-B (BIFIDOBACTERIUM LACTIS) [Concomitant]
  54. VEEN D (CALCIUM CHLORIDE DIHYDRATE, GLUCOSE, POTASSIUM CHLORIDE, SODIUM ACETATE, SODIUM CHLORIDE) [Concomitant]
  55. ESPO (EPOETIN ALFA) [Concomitant]
  56. BUSCOPAN (HYOSCINE BUTYLBROMIDE) (HYOSCINE BUTYLBROMIDE) [Concomitant]
     Active Substance: BUTYLSCOPOLAMINE
  57. SOLITA-T3 (POTASSIUM CHLORIDE, SODIUM CHLORIDE, SODIUM LACTATE) [Concomitant]
  58. BISOLVON (BROMHEXINE HYDROCHLORIDE) [Concomitant]
  59. ZITHROMAC [Concomitant]
     Active Substance: AZITHROMYCIN DIHYDRATE
  60. BROCIN (PRUNUS SPP. BARK) [Concomitant]
  61. DALACIN T (CLINDAMYCIN PHOSPHATE) [Concomitant]

REACTIONS (19)
  - Gastroenteritis [None]
  - Pneumonia [None]
  - Diarrhoea [None]
  - Nephrogenic anaemia [None]
  - Dyslipidaemia [None]
  - Osteoporosis [None]
  - Pharyngitis [None]
  - Back pain [None]
  - Dehydration [None]
  - Rhinitis allergic [None]
  - Upper respiratory tract inflammation [None]
  - Lupus nephritis [None]
  - Cystitis [None]
  - Myalgia [None]
  - Hyperlipidaemia [None]
  - Appendicitis [None]
  - Pleurisy [None]
  - Systemic lupus erythematosus [None]
  - Nasopharyngitis [None]

NARRATIVE: CASE EVENT DATE: 20080201
